FAERS Safety Report 10892021 (Version 1)
Quarter: 2015Q1

REPORT INFORMATION
  Report Type: Spontaneous
  Country: ZA (occurrence: ZA)
  Receive Date: 20150306
  Receipt Date: 20150306
  Transmission Date: 20150721
  Serious: Yes (Hospitalization)
  Sender: FDA-Public Use
  Company Number: ZA-MYLANLABS-2015M1006733

PATIENT

DRUGS (5)
  1. URBANOL [Concomitant]
     Active Substance: CLOBAZAM
     Indication: ANXIETY
     Dosage: 10 MG, QD
  2. FEDALOC [Concomitant]
     Indication: HYPERTENSION
     Dosage: 30 MG, DAILY
  3. BILOCOR [Concomitant]
     Active Substance: BISOPROLOL FUMARATE
     Indication: HYPERTENSION
     Dosage: 5 MG, DAILY
  4. MYLACAND PLUS [Suspect]
     Active Substance: CANDESARTAN CILEXETIL\HYDROCHLOROTHIAZIDE
     Indication: HYPERTENSION
     Dosage: 16 MG, QD
  5. TREPILINE                          /00002201/ [Concomitant]
     Indication: ANTIDEPRESSANT THERAPY
     Dosage: 25 MG, DAILY

REACTIONS (3)
  - Memory impairment [Unknown]
  - Cardiac disorder [Unknown]
  - Confusional state [Unknown]
